FAERS Safety Report 9462499 (Version 1)
Quarter: 2013Q3

REPORT INFORMATION
  Report Type: Spontaneous
  Country: US (occurrence: None)
  Receive Date: 20130813
  Receipt Date: 20130813
  Transmission Date: 20140515
  Serious: Yes (Death)
  Sender: FDA-Public Use
  Company Number: 2013STPI000319

PATIENT
  Age: 65 Year
  Sex: Female
  Weight: 74.8 kg

DRUGS (12)
  1. ABELCET [Suspect]
     Indication: MENINGITIS CRYPTOCOCCAL
     Route: 042
     Dates: start: 20130805, end: 20130805
  2. DUONEB (IPRATROPIUM BROMIDE, SALBUTAMOL SULFATE) [Concomitant]
  3. AMIODARONE HYDROCHLORIDE (AMIODARONE HYDROCHLORIDE) [Concomitant]
  4. ASPIRIN (ACETYSALICYLIC ACID) [Concomitant]
  5. CHLORHEXIDINE (CHLORHEXIDINE) [Concomitant]
  6. DOCUSATE CALCIUM (DOCUSATE CALCIUM) [Concomitant]
  7. ENOXAPARIN SODIUM (ENOXAPARIN SODIUM) [Concomitant]
  8. ERYTHROXPOIETIN (ERYTHROPOIETIN) [Concomitant]
  9. FUROSEMIDE (FUROSEMIDE) [Concomitant]
  10. VANCOMYCIN HCL (VANCOMYCIN HYDROCHLORIDE) [Concomitant]
  11. METOPROLOL (METOPROLOL TARTRATE) [Concomitant]
  12. DIPHENHYDRAMINE HCL (DIPHENHYDRAMINE HYDROCHLORIDE) [Concomitant]

REACTIONS (2)
  - Bradycardia [None]
  - Nodal rhythm [None]
